FAERS Safety Report 7276209-9 (Version None)
Quarter: 2011Q1

REPORT INFORMATION
  Report Type: 
  Country: None (occurrence: None)
  Receive Date: 20110204
  Receipt Date: 20110127
  Transmission Date: 20110831
  Serious: Yes (Other)
  Sender: FDA-Public Use
  Company Number: PHHY2010CA80542

PATIENT
  Sex: Female

DRUGS (9)
  1. LOMOTIL [Concomitant]
     Dosage: 2 DF, QID
     Route: 048
  2. CRCON [Concomitant]
     Dosage: 4 DF, TID
     Route: 048
  3. CALTRATE PLUS [Concomitant]
     Dosage: 2 DF, BID
     Route: 048
  4. CODEINE SULFATE [Concomitant]
     Dosage: 20 MG (1 TABLET, TID)
     Route: 048
  5. VITAMIN D [Concomitant]
     Dosage: 1 DF, OD
     Route: 048
  6. PREVACID [Concomitant]
  7. TPN [Concomitant]
  8. EXJADE [Suspect]
     Indication: THALASSAEMIA
     Dosage: 1000 MG, OD
     Route: 048
     Dates: start: 20101122
  9. CRCON [Concomitant]
     Dosage: 3 DF, TID
     Route: 048

REACTIONS (4)
  - URINE OUTPUT DECREASED [None]
  - PRURITUS GENERALISED [None]
  - ABDOMINAL PAIN [None]
  - RASH [None]
